FAERS Safety Report 25924087 (Version 1)
Quarter: 2025Q4

REPORT INFORMATION
  Report Type: Spontaneous
  Country: US (occurrence: US)
  Receive Date: 20251015
  Receipt Date: 20251015
  Transmission Date: 20260117
  Serious: Yes (Hospitalization)
  Sender: MYLAN
  Company Number: US-MYLANLABS-2025M1087797

PATIENT
  Age: 59 Year
  Sex: Female

DRUGS (4)
  1. CARBIDOPA\LEVODOPA [Suspect]
     Active Substance: CARBIDOPA\LEVODOPA
     Indication: Meige^s syndrome
     Dosage: UNK
  2. BACLOFEN [Suspect]
     Active Substance: BACLOFEN
     Indication: Meige^s syndrome
     Dosage: UNK
  3. BOTULINUM TOXIN NOS [Suspect]
     Active Substance: BOTULINUM TOXIN NOS
     Indication: Meige^s syndrome
     Dosage: UNK (EXTRAOCULAR INJECTION)
  4. BOTOX [Suspect]
     Active Substance: ONABOTULINUMTOXINA
     Indication: Meige^s syndrome
     Dosage: UNK (EXTRAOCULAR INJECTION)

REACTIONS (2)
  - Drug ineffective for unapproved indication [Unknown]
  - Off label use [Unknown]
